FAERS Safety Report 21043775 (Version 1)
Quarter: 2022Q3

REPORT INFORMATION
  Report Type: Spontaneous
  Country: US (occurrence: US)
  Receive Date: 20220705
  Receipt Date: 20220705
  Transmission Date: 20221027
  Serious: Yes (Other)
  Sender: FDA-Public Use
  Company Number: US-Fresenius Medical Care Renal Therapies Group-FMC-2206-000924

PATIENT
  Age: 54 Year
  Sex: Male
  Weight: 69.5 kg

DRUGS (1)
  1. DELFLEX [Suspect]
     Active Substance: CALCIUM CHLORIDE\DEXTROSE\MAGNESIUM CHLORIDE\SODIUM CHLORIDE\SODIUM LACTATE
     Indication: End stage renal disease
     Dosage: 4 EXCHANGES, 2500ML FILL, DWELL 1.5HRS, NO LAST FILL.
     Route: 033
     Dates: start: 20201023

REACTIONS (1)
  - Peritonitis bacterial [Recovering/Resolving]
